FAERS Safety Report 4747660-3 (Version None)
Quarter: 2005Q3

REPORT INFORMATION
  Report Type: 
  Country: None (occurrence: None)
  Receive Date: 20050818
  Receipt Date: 20050509
  Transmission Date: 20060218
  Serious: Yes (Other)
  Sender: FDA-Public Use
  Company Number: US-BRISTOL-MYERS SQUIBB COMPANY-12960167

PATIENT

DRUGS (1)
  1. TEQUIN [Suspect]
     Route: 042

REACTIONS (3)
  - DRUG ADMINISTRATION ERROR [None]
  - FATIGUE [None]
  - HYPOTENSION [None]
